FAERS Safety Report 9051507 (Version 1)
Quarter: 2013Q1

REPORT INFORMATION
  Report Type: Spontaneous
  Country: US (occurrence: US)
  Receive Date: 20130206
  Receipt Date: 20130206
  Transmission Date: 20140127
  Serious: No
  Sender: FDA-Public Use
  Company Number: US-ALLERGAN-1217891US

PATIENT
  Age: 77 Year
  Sex: Female

DRUGS (9)
  1. RESTASIS [Suspect]
     Indication: DRY EYE
     Dosage: 2 GTT, BID
     Route: 047
  2. CORTICOSTEROID NOS [Concomitant]
     Indication: PRODUCT USED FOR UNKNOWN INDICATION
     Dosage: UNK
     Route: 047
  3. TENORMIN [Concomitant]
     Indication: HYPERTENSION
     Dosage: UNK
  4. LIPITOR [Concomitant]
     Indication: BLOOD CHOLESTEROL INCREASED
     Dosage: UNK
  5. ATIVAN [Concomitant]
     Indication: PRODUCT USED FOR UNKNOWN INDICATION
     Dosage: UNK
  6. FOLIC ACID [Concomitant]
     Indication: SUPPLEMENTATION THERAPY
     Dosage: UNK
  7. ACIPHEX [Concomitant]
     Indication: DYSPEPSIA
     Dosage: UNK
  8. COZAAR [Concomitant]
     Indication: HYPERTENSION
     Dosage: UNK
  9. UNSPECIFIED IV MEDICATION FOR OSTEOPOROSIS [Concomitant]
     Indication: OSTEOPOROSIS
     Dosage: UNK
     Route: 042

REACTIONS (3)
  - Ocular hyperaemia [Recovering/Resolving]
  - Eye swelling [Not Recovered/Not Resolved]
  - Eye discharge [Not Recovered/Not Resolved]
